FAERS Safety Report 8879562 (Version 2)
Quarter: 2013Q3

REPORT INFORMATION
  Report Type: Spontaneous
  Country: JP (occurrence: JP)
  Receive Date: 20121101
  Receipt Date: 20130909
  Transmission Date: 20140515
  Serious: Yes (Hospitalization)
  Sender: FDA-Public Use
  Company Number: JP-ASTELLAS-2012JP010137

PATIENT
  Age: 82 Year
  Sex: Female

DRUGS (8)
  1. PROGRAF [Suspect]
     Indication: RHEUMATOID ARTHRITIS
     Dosage: 1 MG, UID/QD
     Route: 048
     Dates: start: 20080624
  2. RHEUMATREX /00113801/ [Suspect]
     Indication: RHEUMATOID ARTHRITIS
     Dosage: 4 MG, UID/QD
     Route: 048
     Dates: start: 20070712, end: 20070725
  3. RHEUMATREX /00113801/ [Suspect]
     Dosage: 6 MG, UID/QD
     Route: 048
     Dates: start: 20070726, end: 20070808
  4. RHEUMATREX /00113801/ [Suspect]
     Dosage: 8 MG, UID/QD
     Route: 048
     Dates: start: 20070809, end: 20110227
  5. RHEUMATREX /00113801/ [Suspect]
     Dosage: 10 MG, UID/QD
     Route: 048
     Dates: start: 20110228
  6. BONOTEO [Concomitant]
     Indication: OSTEOPOROSIS
     Dosage: UNK
     Route: 048
     Dates: start: 20120128
  7. LIVALO [Concomitant]
     Indication: HYPERLIPIDAEMIA
     Dosage: 2 MG, UID/QD
     Route: 048
     Dates: start: 20110825, end: 20130502
  8. PREDONINE                          /00016201/ [Concomitant]
     Indication: RHEUMATOID ARTHRITIS
     Dosage: 2 MG, UID/QD
     Route: 048
     Dates: start: 20070827, end: 20130502

REACTIONS (2)
  - Intentional drug misuse [Unknown]
  - Intestinal obstruction [Recovering/Resolving]
